FAERS Safety Report 7733829-2 (Version None)
Quarter: 2011Q3

REPORT INFORMATION
  Report Type: 
  Country: None (occurrence: None)
  Receive Date: 20110907
  Receipt Date: 20110831
  Transmission Date: 20111222
  Serious: Yes (Life-Threatening)
  Sender: FDA-Public Use
  Company Number: JP-SANOFI-AVENTIS-2011SA041891

PATIENT
  Age: 69 Year
  Sex: Female
  Weight: 49.4 kg

DRUGS (17)
  1. PLAVIX [Suspect]
     Route: 048
     Dates: start: 20090817
  2. CRESTOR [Concomitant]
     Route: 048
     Dates: start: 20090816
  3. ELECTROLYTE SOLUTIONS [Concomitant]
     Route: 051
     Dates: start: 20090816, end: 20090819
  4. CEFAZOLIN SODIUM [Concomitant]
     Indication: PROPHYLAXIS
     Route: 051
     Dates: start: 20090816, end: 20090817
  5. RINGER-ACETAT SPECIAL [Concomitant]
     Dosage: 500 TO 1000 ML ONCE DAILY
     Route: 051
     Dates: start: 20090816, end: 20090817
  6. MORPHINE HCL ELIXIR [Concomitant]
     Dosage: 3 TO 9 MG ONCE DAILY
     Route: 051
     Dates: start: 20090816, end: 20090817
  7. OMEPRAZOLE [Concomitant]
     Indication: PROPHYLAXIS
     Route: 051
     Dates: start: 20090816, end: 20090818
  8. HEPARIN [Suspect]
     Dosage: DOSE:10000 UNIT(S)
     Route: 042
     Dates: start: 20090816, end: 20090817
  9. PLAVIX [Suspect]
     Route: 048
     Dates: start: 20090816, end: 20090816
  10. ASPIRIN [Concomitant]
     Route: 048
     Dates: start: 20090816
  11. LANSOPRAZOLE [Concomitant]
     Indication: PROPHYLAXIS
     Route: 048
     Dates: start: 20090816
  12. NICORANDIL [Concomitant]
     Route: 051
     Dates: start: 20090816, end: 20090818
  13. PRIMPERAN TAB [Concomitant]
     Dosage: ONCE TO 3 TIMES DAILY
     Route: 051
     Dates: start: 20090816, end: 20090817
  14. PL GRAN. [Concomitant]
     Indication: PROPHYLAXIS
     Route: 048
     Dates: start: 20090830, end: 20090831
  15. HEPARIN [Suspect]
     Dosage: DOSE:12000 UNIT(S)
     Route: 041
     Dates: start: 20090816, end: 20090817
  16. LOSARTAN POTASSIUM [Concomitant]
     Indication: CARDIAC TAMPONADE
     Route: 048
     Dates: start: 20090824, end: 20090930
  17. DOPAMINE HYDROCHLORIDE [Concomitant]
     Dosage: 2 TO 8 ML/H
     Route: 051
     Dates: start: 20090816, end: 20090820

REACTIONS (2)
  - UPPER RESPIRATORY TRACT INFLAMMATION [None]
  - CARDIAC TAMPONADE [None]
